FAERS Safety Report 17191662 (Version 1)
Quarter: 2019Q4

REPORT INFORMATION
  Report Type: Spontaneous
  Country: DE (occurrence: DE)
  Receive Date: 20191223
  Receipt Date: 20191223
  Transmission Date: 20200122
  Serious: Yes (Other)
  Sender: FDA-Public Use
  Company Number: DE-TEVA-2019-DE-1155604

PATIENT
  Age: 57 Year
  Sex: Female

DRUGS (10)
  1. QUETIAPINE RETARD [Suspect]
     Active Substance: QUETIAPINE
     Dosage: 100 MG
     Dates: start: 201905, end: 20190822
  2. QUETIAPINE RETARD [Suspect]
     Active Substance: QUETIAPINE
     Dosage: BIS AUF WEITERES
     Dates: start: 20190823
  3. CLOMIPRAMINE [Suspect]
     Active Substance: CLOMIPRAMINE
     Dates: start: 20190702, end: 20190704
  4. CLOMIPRAMINE [Suspect]
     Active Substance: CLOMIPRAMINE
     Dosage: BIS AUF WEITERES
     Dates: start: 20190705
  5. CLOMIPRAMINE [Suspect]
     Active Substance: CLOMIPRAMINE
     Dosage: 75 MG
     Dates: start: 201906, end: 20190701
  6. CHLORPROTHIXEN [Suspect]
     Active Substance: CHLORPROTHIXENE HYDROCHLORIDE
     Dosage: 50 MG
     Dates: start: 201904, end: 20190820
  7. MIRTAZAPINE. [Suspect]
     Active Substance: MIRTAZAPINE
     Dates: end: 20190820
  8. MIRTAZAPINE. [Suspect]
     Active Substance: MIRTAZAPINE
     Dosage: 30 MG
     Dates: start: 201904, end: 20190819
  9. CANDESARTAN. [Concomitant]
     Active Substance: CANDESARTAN
     Dosage: UNTIL FURTHER NOTICE. 32 MG
  10. QUETIAPIN UNRET. [Concomitant]
     Dosage: UNTIL FURTHER NOTICE. 50 MG
     Dates: start: 201905

REACTIONS (1)
  - Electrocardiogram QT prolonged [Recovered/Resolved]

NARRATIVE: CASE EVENT DATE: 20190809
